FAERS Safety Report 14539161 (Version 4)
Quarter: 2018Q2

REPORT INFORMATION
  Report Type: Report from Study
  Country: US (occurrence: US)
  Receive Date: 20180216
  Receipt Date: 20180518
  Transmission Date: 20180711
  Serious: Yes (Other)
  Sender: FDA-Public Use
  Company Number: PHEH2018US006210

PATIENT
  Sex: Male

DRUGS (1)
  1. ENTRESTO [Suspect]
     Active Substance: SACUBITRIL\VALSARTAN
     Indication: PRODUCT USED FOR UNKNOWN INDICATION
     Dosage: UNK, BID
     Route: 048

REACTIONS (17)
  - Speech disorder [Unknown]
  - Diabetes mellitus [Unknown]
  - Fluid retention [Unknown]
  - Dysgeusia [Unknown]
  - Dry mouth [Unknown]
  - Peripheral swelling [Not Recovered/Not Resolved]
  - Cardiac failure congestive [Unknown]
  - Influenza [Recovered/Resolved]
  - Blood glucose decreased [Unknown]
  - Hip fracture [Unknown]
  - Fall [Unknown]
  - Fatigue [Unknown]
  - Cough [Not Recovered/Not Resolved]
  - Limb injury [Unknown]
  - Decreased appetite [Unknown]
  - Back disorder [Unknown]
  - Feeling abnormal [Unknown]
